FAERS Safety Report 9008948 (Version 1)
Quarter: 2013Q1

REPORT INFORMATION
  Report Type: Spontaneous
  Country: US (occurrence: US)
  Receive Date: 20130111
  Receipt Date: 20130111
  Transmission Date: 20140127
  Serious: Yes (Hospitalization)
  Sender: FDA-Public Use
  Company Number: US-009507513-1301USA002514

PATIENT
  Sex: Male

DRUGS (7)
  1. KIPRES [Suspect]
     Route: 048
  2. CLARITHROMYCIN [Suspect]
     Route: 048
  3. LEVOFLOXACIN [Suspect]
  4. HOKUNALIN [Suspect]
     Indication: COUGH
     Route: 062
  5. ROCEPHIN [Suspect]
     Indication: PNEUMONIA
     Route: 042
  6. THEOLONG [Suspect]
     Indication: PYREXIA
     Route: 048
  7. MEFENAMIC ACID [Suspect]
     Route: 048

REACTIONS (3)
  - Rash [Unknown]
  - Hepatic function abnormal [Unknown]
  - Eosinophilic pneumonia [Unknown]
